FAERS Safety Report 11178276 (Version 1)
Quarter: 2015Q2

REPORT INFORMATION
  Report Type: Spontaneous
  Country: US (occurrence: US)
  Receive Date: 20150610
  Receipt Date: 20150610
  Transmission Date: 20150821
  Serious: Yes (Life-Threatening, Hospitalization, Other)
  Sender: FDA-Public Use
  Company Number: US-GLAXOSMITHKLINE-US2015GSK080194

PATIENT
  Age: 65 Year
  Sex: Female

DRUGS (3)
  1. ACICLOVIR [Suspect]
     Active Substance: ACYCLOVIR
     Indication: PRODUCT USED FOR UNKNOWN INDICATION
     Dosage: 1 G, UNK
     Route: 042
  2. PREDNISOLONE. [Concomitant]
     Active Substance: PREDNISOLONE
     Indication: HERPES ZOSTER
  3. VALACYCLOVIR [Suspect]
     Active Substance: VALACYCLOVIR HYDROCHLORIDE
     Indication: HERPES ZOSTER
     Dosage: 1 G, TID
     Route: 048

REACTIONS (16)
  - Pulmonary oedema [Recovered/Resolved]
  - Neurotoxicity [Recovered/Resolved]
  - Altered state of consciousness [Recovered/Resolved]
  - Seizure [Recovered/Resolved]
  - Delusion [Recovered/Resolved]
  - Myoclonus [Recovered/Resolved]
  - Coma [Recovered/Resolved]
  - Toxicity to various agents [Unknown]
  - Hallucination [Recovered/Resolved]
  - Emotional disorder [Recovered/Resolved]
  - Depressed level of consciousness [Recovered/Resolved]
  - Mental disorder [Recovered/Resolved]
  - Tachycardia [Recovered/Resolved]
  - Rales [Recovered/Resolved]
  - Agitation [Recovered/Resolved]
  - Unresponsive to stimuli [Recovered/Resolved]
